FAERS Safety Report 26124086 (Version 1)
Quarter: 2025Q4

REPORT INFORMATION
  Report Type: Spontaneous
  Country: US (occurrence: US)
  Receive Date: 20251205
  Receipt Date: 20251205
  Transmission Date: 20260118
  Serious: Yes (Life-Threatening, Hospitalization, Other)
  Sender: Steriscience PTE
  Company Number: US-STERISCIENCE B.V.-2025-ST-001678

PATIENT
  Age: 6 Decade
  Sex: Female

DRUGS (7)
  1. METHYLENE BLUE [Interacting]
     Active Substance: METHYLENE BLUE
     Indication: Confusional state
     Dosage: UNK
     Route: 065
  2. METHYLENE BLUE [Interacting]
     Active Substance: METHYLENE BLUE
     Indication: Hyperhidrosis
  3. IFOSFAMIDE [Interacting]
     Active Substance: IFOSFAMIDE
     Indication: Metastases to lung
     Dosage: UNK
     Route: 065
  4. IFOSFAMIDE [Interacting]
     Active Substance: IFOSFAMIDE
     Indication: Sarcoma
  5. ESCITALOPRAM [Suspect]
     Active Substance: ESCITALOPRAM OXALATE
     Indication: Mood swings
     Dosage: UNK
     Route: 065
  6. CODEINE [Suspect]
     Active Substance: CODEINE
     Indication: Cough
     Dosage: UNK
     Route: 065
  7. GUAIFENESIN [Concomitant]
     Active Substance: GUAIFENESIN
     Indication: Cough
     Dosage: UNK
     Route: 065

REACTIONS (4)
  - Condition aggravated [None]
  - Drug interaction [Unknown]
  - Serotonin syndrome [None]
  - Off label use [Unknown]
